FAERS Safety Report 4308089-5 (Version None)
Quarter: 2004Q1

REPORT INFORMATION
  Report Type: 
  Country: None (occurrence: None)
  Receive Date: 20040301
  Receipt Date: 20030505
  Transmission Date: 20041129
  Serious: No
  Sender: FDA-Public Use
  Company Number: US-BRISTOL-MYERS SQUIBB COMPANY-12263232

PATIENT
  Age: 82 Year
  Sex: Male
  Weight: 73 kg

DRUGS (21)
  1. GLUCOPHAGE [Suspect]
     Indication: DIABETES MELLITUS
     Dosage: DURATION OF THERAPY:  ^4-5 YEARS^
     Route: 048
  2. LIPITOR [Concomitant]
  3. GLUCOTROL XL [Concomitant]
  4. CHOLINE [Concomitant]
  5. ZINC SULFATE [Concomitant]
  6. VITAMIN C [Concomitant]
  7. MAGNESIUM [Concomitant]
  8. LIPOIC ACID [Concomitant]
  9. MANGANESE [Concomitant]
  10. COENZYME Q10 [Concomitant]
  11. VITAMIN E [Concomitant]
  12. FOLIC ACID [Concomitant]
  13. VITAMIN B-12 [Concomitant]
  14. VITAMIN B6 [Concomitant]
  15. MILK THISTLE [Concomitant]
  16. BETA CAROTENE [Concomitant]
  17. BLACK CURRANT OIL [Concomitant]
  18. GUGULIPID [Concomitant]
  19. NATURES WAY KIDNEY BLADDER FORMULA [Concomitant]
  20. SCHIZANDRA [Concomitant]
  21. ASTRAGALUS [Concomitant]

REACTIONS (2)
  - ANAEMIA [None]
  - GLYCOSYLATED HAEMOGLOBIN INCREASED [None]
